FAERS Safety Report 6965266-2 (Version None)
Quarter: 2010Q3

REPORT INFORMATION
  Report Type: 
  Country: None (occurrence: None)
  Receive Date: 20100903
  Receipt Date: 20100830
  Transmission Date: 20110219
  Serious: Yes (Disabling)
  Sender: FDA-Public Use
  Company Number: DK-BRACCO-000058

PATIENT
  Sex: Male

DRUGS (4)
  1. MULTIHANCE [Suspect]
     Indication: NEPHROSCLEROSIS
     Dosage: 334 MG/ML
     Route: 042
     Dates: start: 20010525, end: 20010525
  2. MULTIHANCE [Suspect]
     Indication: SCAN WITH CONTRAST
     Dosage: 334 MG/ML
     Route: 042
     Dates: start: 20010525, end: 20010525
  3. OMNISCAN [Suspect]
     Indication: NEPHROSCLEROSIS
     Route: 042
     Dates: start: 20021021, end: 20021021
  4. OMNISCAN [Suspect]
     Indication: SCAN WITH CONTRAST
     Dosage: 0.5 MILLIMOLE(S)/ML
     Route: 042
     Dates: start: 20050517, end: 20050517

REACTIONS (1)
  - NEPHROGENIC SYSTEMIC FIBROSIS [None]
